FAERS Safety Report 19659922 (Version 2)
Quarter: 2021Q3

REPORT INFORMATION
  Report Type: Spontaneous
  Country: US (occurrence: US)
  Receive Date: 20210805
  Receipt Date: 20210827
  Transmission Date: 20211014
  Serious: Yes (Other)
  Sender: FDA-Public Use
  Company Number: US-FARMAPROD-202107-1099

PATIENT
  Sex: Female

DRUGS (26)
  1. CULTURELLE PROBIOTIC/MULTIVITAMINE [Concomitant]
  2. OXERVATE [Suspect]
     Active Substance: CENEGERMIN-BKBJ
     Indication: NEUROTROPHIC KERATOPATHY
     Route: 047
     Dates: start: 20210621
  3. IBUPROFEN. [Concomitant]
     Active Substance: IBUPROFEN
  4. METHOTREXATE. [Concomitant]
     Active Substance: METHOTREXATE
  5. ARMOUR THYROID [Concomitant]
     Active Substance: THYROID, PORCINE
  6. ENBREL [Concomitant]
     Active Substance: ETANERCEPT
     Dosage: 500 MG/ML SYRINGE
  7. NALTREXONE HCL [Concomitant]
     Active Substance: NALTREXONE HYDROCHLORIDE
  8. GABAPENTIN. [Concomitant]
     Active Substance: GABAPENTIN
  9. IRON [Concomitant]
     Active Substance: IRON
     Dosage: 159(45) EXTENDED RELEASE TABLET
  10. PILOCARPINE HCL [Concomitant]
     Active Substance: PILOCARPINE HYDROCHLORIDE
  11. ONDANSETRON HCL [Concomitant]
     Active Substance: ONDANSETRON HYDROCHLORIDE
  12. SUMATRIPTAN SUCCINATE. [Concomitant]
     Active Substance: SUMATRIPTAN SUCCINATE
  13. HYDROXYZINE HCL [Concomitant]
     Active Substance: HYDROXYZINE HYDROCHLORIDE
  14. BENADRYL [Concomitant]
     Active Substance: DIPHENHYDRAMINE HYDROCHLORIDE
  15. ACETAMINOPHEN. [Concomitant]
     Active Substance: ACETAMINOPHEN
  16. PROPRANOLOL HCL [Concomitant]
     Active Substance: PROPRANOLOL HYDROCHLORIDE
  17. HYDROXYCHLOROQUINE SULFATE. [Concomitant]
     Active Substance: HYDROXYCHLOROQUINE SULFATE
  18. BISACODYL. [Concomitant]
     Active Substance: BISACODYL
     Dosage: 5 MG EXTENDED RELEASE TABLET
  19. BACLOFEN. [Concomitant]
     Active Substance: BACLOFEN
  20. REFRESH TEARS [Concomitant]
     Active Substance: CARBOXYMETHYLCELLULOSE SODIUM
  21. AMOXICILLIN. [Concomitant]
     Active Substance: AMOXICILLIN
  22. ZOLPIDEM TARTRATE. [Concomitant]
     Active Substance: ZOLPIDEM TARTRATE
  23. LEVETIRACETAM. [Concomitant]
     Active Substance: LEVETIRACETAM
  24. DULOXETINE HCL [Concomitant]
     Active Substance: DULOXETINE HYDROCHLORIDE
     Dosage: 20 MG DELAYED RELEASE CAPSULE
  25. CLARITIN?D 12 HOUR [Concomitant]
     Active Substance: LORATADINE\PSEUDOEPHEDRINE SULFATE
  26. PREDNISOLONE/NEPAFENAC [Concomitant]

REACTIONS (8)
  - Ocular discomfort [Unknown]
  - Eye pain [Recovered/Resolved]
  - Concussion [Unknown]
  - Product administration error [Unknown]
  - Hip fracture [Unknown]
  - Swelling of eyelid [Recovered/Resolved]
  - Eye discharge [Unknown]
  - Eye pruritus [Unknown]
